FAERS Safety Report 6903296-7 (Version None)
Quarter: 2010Q3

REPORT INFORMATION
  Report Type: 
  Country: None (occurrence: None)
  Receive Date: 20100803
  Receipt Date: 20080916
  Transmission Date: 20110219
  Serious: No
  Sender: FDA-Public Use
  Company Number: US-PFIZER INC-2008066303

PATIENT
  Sex: Female
  Weight: 50 kg

DRUGS (2)
  1. LYRICA [Suspect]
     Indication: FIBROMYALGIA
     Route: 048
     Dates: start: 20080601
  2. NYSTATIN [Concomitant]

REACTIONS (4)
  - DISORIENTATION [None]
  - DIZZINESS [None]
  - SOMNOLENCE [None]
  - TONGUE DISORDER [None]
